FAERS Safety Report 7242840-X (Version None)
Quarter: 2011Q1

REPORT INFORMATION
  Report Type: 
  Country: None (occurrence: None)
  Receive Date: 20110125
  Receipt Date: 20110118
  Transmission Date: 20110831
  Serious: Yes (Death)
  Sender: FDA-Public Use
  Company Number: US-SHIRE-SPV1-2011-00072

PATIENT
  Sex: Male

DRUGS (1)
  1. CARBATROL [Suspect]
     Indication: PRODUCT USED FOR UNKNOWN INDICATION
     Dosage: 200 MG, UNKNOWN

REACTIONS (4)
  - HEAD INJURY [None]
  - DRUG DIVERSION [None]
  - EXPIRED DRUG ADMINISTERED [None]
  - ROAD TRAFFIC ACCIDENT [None]
